FAERS Safety Report 23265121 (Version 3)
Quarter: 2023Q4

REPORT INFORMATION
  Report Type: Spontaneous
  Country: US (occurrence: US)
  Receive Date: 20231206
  Receipt Date: 20231210
  Transmission Date: 20240110
  Serious: Yes (Hospitalization, Other)
  Sender: FDA-Public Use
  Company Number: US-BoehringerIngelheim-2023-BI-275746

PATIENT
  Age: 90 Year
  Sex: Female

DRUGS (1)
  1. SPIRIVA RESPIMAT [Suspect]
     Active Substance: TIOTROPIUM BROMIDE
     Indication: Asthma
     Dosage: 1.25MCG/2 PUFFS PER DAY, INHALATION SPRAY
     Dates: start: 20231129

REACTIONS (4)
  - Hypertension [Not Recovered/Not Resolved]
  - Pneumonia [Recovering/Resolving]
  - Dyspnoea [Not Recovered/Not Resolved]
  - Device malfunction [Unknown]

NARRATIVE: CASE EVENT DATE: 20231129
